FAERS Safety Report 14788453 (Version 6)
Quarter: 2019Q1

REPORT INFORMATION
  Report Type: Spontaneous
  Country: US (occurrence: US)
  Receive Date: 20180423
  Receipt Date: 20190129
  Transmission Date: 20190417
  Serious: No
  Sender: FDA-Public Use
  Company Number: US-ASTRAZENECA-2018SE47932

PATIENT
  Age: 76 Year
  Sex: Male
  Weight: 94.8 kg

DRUGS (12)
  1. ASPIRIN. [Concomitant]
     Active Substance: ASPIRIN
  2. MELOXICAM. [Concomitant]
     Active Substance: MELOXICAM
  3. TERAZOSIN [Concomitant]
     Active Substance: TERAZOSIN\TERAZOSIN HYDROCHLORIDE
  4. LISINOPRIL. [Suspect]
     Active Substance: LISINOPRIL
     Route: 048
  5. OMEPRAZOLE. [Suspect]
     Active Substance: OMEPRAZOLE
     Indication: GASTROINTESTINAL DISORDER
     Route: 048
  6. LABETALOL [Concomitant]
     Active Substance: LABETALOL\LABETALOL HYDROCHLORIDE
     Indication: BLOOD PRESSURE MEASUREMENT
     Route: 048
  7. SIMVASTATIN. [Concomitant]
     Active Substance: SIMVASTATIN
  8. BYDUREON [Suspect]
     Active Substance: EXENATIDE
     Indication: BLOOD GLUCOSE INCREASED
     Route: 058
     Dates: start: 20180411
  9. VENLAFAXINE [Concomitant]
     Active Substance: VENLAFAXINE HYDROCHLORIDE
  10. BYDUREON [Suspect]
     Active Substance: EXENATIDE
     Indication: TYPE 2 DIABETES MELLITUS
     Route: 058
     Dates: start: 20180411
  11. GABAPENTIN. [Concomitant]
     Active Substance: GABAPENTIN
     Indication: PAIN
     Route: 048
  12. GABAPENTIN. [Concomitant]
     Active Substance: GABAPENTIN
     Indication: OSTEOARTHRITIS
     Route: 048

REACTIONS (27)
  - Nervous system disorder [Unknown]
  - Snoring [Unknown]
  - Blood pressure systolic abnormal [Unknown]
  - Abdominal discomfort [Recovering/Resolving]
  - Injection site haemorrhage [Unknown]
  - Blood glucose increased [Not Recovered/Not Resolved]
  - Intentional device misuse [Unknown]
  - Altered state of consciousness [Recovered/Resolved]
  - Nervousness [Unknown]
  - Oropharyngeal pain [Unknown]
  - Pain [Unknown]
  - Haematoma [Unknown]
  - Nausea [Recovering/Resolving]
  - Underdose [Unknown]
  - Osteoarthritis [Not Recovered/Not Resolved]
  - Injection site mass [Unknown]
  - Back pain [Unknown]
  - Malaise [Recovering/Resolving]
  - Injection site extravasation [Unknown]
  - Product administered at inappropriate site [Unknown]
  - Circumstance or information capable of leading to medication error [Unknown]
  - Headache [Recovering/Resolving]
  - Herpes zoster [Not Recovered/Not Resolved]
  - Weight decreased [Unknown]
  - Needle issue [Recovered/Resolved]
  - Sleep apnoea syndrome [Unknown]
  - Injection site pain [Recovered/Resolved]

NARRATIVE: CASE EVENT DATE: 2018
